FAERS Safety Report 13598813 (Version 2)
Quarter: 2017Q2

REPORT INFORMATION
  Report Type: Spontaneous
  Country: BR (occurrence: BR)
  Receive Date: 20170531
  Receipt Date: 20170612
  Transmission Date: 20170830
  Serious: Yes (Death, Hospitalization)
  Sender: FDA-Public Use
  Company Number: BR-PFIZER INC-2017235917

PATIENT
  Age: 57 Year
  Sex: Male

DRUGS (3)
  1. SUTENT [Suspect]
     Active Substance: SUNITINIB MALATE
     Indication: RENAL CANCER METASTATIC
     Dosage: 50 MG, CYCLIC (28 DAYS IN A ROW WITH BREAK OF 15 DAY)
     Dates: start: 201702
  2. MORPHINE [Concomitant]
     Active Substance: MORPHINE
     Indication: PAIN
     Dosage: UNK
     Dates: start: 201702
  3. GABAPENTIN. [Concomitant]
     Active Substance: GABAPENTIN
     Indication: PAIN
     Dosage: UNK
     Dates: start: 201702

REACTIONS (8)
  - Dehydration [Not Recovered/Not Resolved]
  - Neoplasm progression [Fatal]
  - Arrhythmia [Fatal]
  - Hyperkalaemia [Fatal]
  - Renal failure [Fatal]
  - Malaise [Recovered/Resolved]
  - Blood pressure decreased [Recovered/Resolved]
  - Hypophagia [Not Recovered/Not Resolved]

NARRATIVE: CASE EVENT DATE: 2017
